FAERS Safety Report 18667955 (Version 1)
Quarter: 2020Q4

REPORT INFORMATION
  Report Type: Spontaneous
  Country: PT (occurrence: PT)
  Receive Date: 20201228
  Receipt Date: 20201228
  Transmission Date: 20210114
  Serious: Yes (Other)
  Sender: FDA-Public Use
  Company Number: PT-TEVA-2020-PT-1863121

PATIENT

DRUGS (2)
  1. METHOTREXATE. [Suspect]
     Active Substance: METHOTREXATE
     Indication: HAEMATOLOGICAL MALIGNANCY
     Dosage: HIGH DOSE
     Route: 041
  2. METHOTREXATE. [Suspect]
     Active Substance: METHOTREXATE
     Dosage: INTRATHECAL INFUSION, HIGH DOSE
     Route: 050

REACTIONS (2)
  - Cutaneous symptom [Recovered/Resolved]
  - Infusion related hypersensitivity reaction [Recovered/Resolved]
